FAERS Safety Report 5392030-0 (Version None)
Quarter: 2007Q3

REPORT INFORMATION
  Report Type: 
  Country: None (occurrence: None)
  Receive Date: 20070720
  Receipt Date: 20070716
  Transmission Date: 20080115
  Serious: Yes (Hospitalization, Other)
  Sender: FDA-Public Use
  Company Number: US-BAYER-200711784BWH

PATIENT
  Age: 58 Year
  Sex: Female

DRUGS (4)
  1. AVELOX [Suspect]
     Indication: RESPIRATORY TRACT INFECTION
     Route: 048
     Dates: start: 20070401
  2. ZITHROMAX [Concomitant]
     Indication: RESPIRATORY TRACT INFECTION
  3. LEVOTHYROXINE SODIUM [Concomitant]
  4. DRUG IN THE MAXIDE FAMILY [Concomitant]

REACTIONS (12)
  - ANAPHYLACTIC REACTION [None]
  - CONTUSION [None]
  - EAR PRURITUS [None]
  - FALL [None]
  - HEAD INJURY [None]
  - HYPOTENSION [None]
  - NASAL DISCOMFORT [None]
  - NECK INJURY [None]
  - RASH [None]
  - SKIN BURNING SENSATION [None]
  - THROAT IRRITATION [None]
  - UNEVALUABLE EVENT [None]
